FAERS Safety Report 5175752-6 (Version None)
Quarter: 2006Q4

REPORT INFORMATION
  Report Type: 
  Country: None (occurrence: None)
  Receive Date: 20061215
  Receipt Date: 20060716
  Transmission Date: 20070319
  Serious: No
  Sender: FDA-Public Use
  Company Number: US-AMGEN-KDL186548

PATIENT
  Sex: Female

DRUGS (3)
  1. ENBREL [Suspect]
     Indication: RHEUMATOID ARTHRITIS
     Route: 058
     Dates: start: 20031101
  2. ARAVA [Concomitant]
     Route: 048
     Dates: start: 19990101
  3. METHOTREXATE [Concomitant]
     Dates: start: 19990101

REACTIONS (5)
  - BRONCHITIS [None]
  - DEPRESSION [None]
  - FATIGUE [None]
  - INJECTION SITE PAIN [None]
  - JOINT SWELLING [None]
